FAERS Safety Report 9901234 (Version 1)
Quarter: 2014Q1

REPORT INFORMATION
  Report Type: Spontaneous
  Country: US (occurrence: US)
  Receive Date: 20140217
  Receipt Date: 20140217
  Transmission Date: 20141002
  Serious: No
  Sender: FDA-Public Use
  Company Number: US-009507513-1402USA005520

PATIENT
  Age: 40 Year
  Sex: Female

DRUGS (2)
  1. PUREGON PEN [Suspect]
     Indication: PRODUCT USED FOR UNKNOWN INDICATION
     Dosage: 225 IU, BID
     Route: 058
     Dates: start: 20140207
  2. FOLLISTIM AQ CARTRIDGE [Suspect]
     Indication: PRODUCT USED FOR UNKNOWN INDICATION
     Dosage: 225 IU, BID
     Route: 058
     Dates: start: 20140207

REACTIONS (2)
  - Underdose [Unknown]
  - Device malfunction [Unknown]
